FAERS Safety Report 19201179 (Version 2)
Quarter: 2021Q2

REPORT INFORMATION
  Report Type: Report from Study
  Country: US (occurrence: US)
  Receive Date: 20210430
  Receipt Date: 20210604
  Transmission Date: 20210717
  Serious: Yes (Other)
  Sender: FDA-Public Use
  Company Number: US-BIOGEN-2021BI00998061

PATIENT
  Age: 53 Year
  Sex: Male

DRUGS (3)
  1. SPINRAZA [Suspect]
     Active Substance: NUSINERSEN
     Indication: SPINAL MUSCULAR ATROPHY
     Route: 065
  2. SPINRAZA [Suspect]
     Active Substance: NUSINERSEN
     Route: 065
     Dates: start: 201806
  3. SPINRAZA [Suspect]
     Active Substance: NUSINERSEN
     Route: 037
     Dates: start: 20210423

REACTIONS (3)
  - Spinal compression fracture [Not Recovered/Not Resolved]
  - Pain [Unknown]
  - Fall [Recovered/Resolved]

NARRATIVE: CASE EVENT DATE: 202103
